FAERS Safety Report 4772958-2 (Version None)
Quarter: 2005Q3

REPORT INFORMATION
  Report Type: 
  Country: None (occurrence: None)
  Receive Date: 20050916
  Receipt Date: 20050906
  Transmission Date: 20060218
  Serious: Yes (Hospitalization)
  Sender: FDA-Public Use
  Company Number: 2005045695

PATIENT
  Age: 67 Year
  Sex: Female
  Weight: 103 kg

DRUGS (6)
  1. EXEMESTANE [Suspect]
     Indication: BREAST CANCER
     Dosage: 25 MG, ORAL
     Route: 048
     Dates: start: 20020703, end: 20050307
  2. FUROSEMIDE [Concomitant]
  3. RAMIPRIL [Concomitant]
  4. AMLODIPINE [Concomitant]
  5. LEVOTHYROXINE SODIUM [Concomitant]
  6. PANTOPRAZOLE SODIUM [Concomitant]

REACTIONS (6)
  - COUGH [None]
  - DEEP VEIN THROMBOSIS [None]
  - FOREARM FRACTURE [None]
  - JOINT SPRAIN [None]
  - MOBILITY DECREASED [None]
  - PULMONARY EMBOLISM [None]
